FAERS Safety Report 6969107-9 (Version None)
Quarter: 2010Q3

REPORT INFORMATION
  Report Type: 
  Country: None (occurrence: None)
  Receive Date: 20100907
  Receipt Date: 20100826
  Transmission Date: 20110219
  Serious: Yes (Other)
  Sender: FDA-Public Use
  Company Number: DE-WYE-H17196310

PATIENT
  Age: 31 Year
  Sex: Female

DRUGS (4)
  1. PANTOPRAZOLE SODIUM [Suspect]
     Dosage: OVERDOSE AMOUNT 7 TABLETS
     Route: 048
  2. ACETAMINOPHEN [Suspect]
     Dosage: UNKNOWN
  3. IBUPROFEN [Suspect]
     Dosage: UNKNOWN
  4. HYOSCINE HBR HYT [Suspect]
     Dosage: UNKNOWN

REACTIONS (4)
  - ELECTROCARDIOGRAM QT PROLONGED [None]
  - INTENTIONAL OVERDOSE [None]
  - SUICIDE ATTEMPT [None]
  - TACHYCARDIA [None]
